FAERS Safety Report 16017176 (Version 2)
Quarter: 2019Q1

REPORT INFORMATION
  Report Type: Spontaneous
  Country: FR (occurrence: FR)
  Receive Date: 20190228
  Receipt Date: 20190228
  Transmission Date: 20190418
  Serious: Yes (Hospitalization, Other)
  Sender: FDA-Public Use
  Company Number: FR-PFIZER INC-2019088539

PATIENT
  Age: 57 Year
  Sex: Female
  Weight: 56 kg

DRUGS (10)
  1. BENERVA [Concomitant]
     Active Substance: THIAMINE HYDROCHLORIDE
     Dosage: UNK
  2. IMOVANE [Concomitant]
     Active Substance: ZOPICLONE
  3. PREGABALIN. [Suspect]
     Active Substance: PREGABALIN
     Dosage: 375 MG, UNK
     Route: 048
     Dates: start: 20180903, end: 20180903
  4. ATENOLOL. [Suspect]
     Active Substance: ATENOLOL
     Dosage: 750 MG, UNK
     Route: 048
     Dates: start: 20180903, end: 20180903
  5. ACAMPROSATE BIOGARAN [Suspect]
     Active Substance: ACAMPROSATE CALCIUM
     Dosage: 2331 MG, UNK
     Route: 048
     Dates: start: 20180903, end: 20180903
  6. NALTREXONE [Concomitant]
     Active Substance: NALTREXONE
     Dosage: UNK
  7. VALSARTAN. [Suspect]
     Active Substance: VALSARTAN
     Dosage: 150 MG, UNK
     Route: 048
     Dates: start: 20180903, end: 20180903
  8. AMLODIPINE BESILATE [Suspect]
     Active Substance: AMLODIPINE BESYLATE
     Dosage: 170 MG, UNK
     Route: 048
     Dates: start: 20180903, end: 20180903
  9. FLUOXETINE [Suspect]
     Active Substance: FLUOXETINE HYDROCHLORIDE
     Dosage: 280 MG, UNK
     Route: 048
     Dates: start: 20180903, end: 20180903
  10. DOXYLAMINE SUCCINATE. [Suspect]
     Active Substance: DOXYLAMINE SUCCINATE
     Dosage: UNK
     Route: 048
     Dates: start: 20180903, end: 20180903

REACTIONS (3)
  - Coma [Recovered/Resolved]
  - Seizure [Recovered/Resolved]
  - Intentional overdose [Recovered/Resolved]

NARRATIVE: CASE EVENT DATE: 20180903
